FAERS Safety Report 9501522 (Version 1)
Quarter: 2013Q3

REPORT INFORMATION
  Report Type: Spontaneous
  Country: CN (occurrence: CN)
  Receive Date: 20130905
  Receipt Date: 20130905
  Transmission Date: 20140515
  Serious: Yes (Hospitalization, Other)
  Sender: FDA-Public Use
  Company Number: CN-BRISTOL-MYERS SQUIBB COMPANY-19226372

PATIENT
  Age: 33 Year
  Sex: Male

DRUGS (1)
  1. BARACLUDE [Suspect]
     Route: 048
     Dates: start: 20130730

REACTIONS (4)
  - Gallbladder disorder [Unknown]
  - Viral load increased [Unknown]
  - Nausea [Unknown]
  - Abdominal discomfort [Unknown]
